FAERS Safety Report 9191504 (Version 1)
Quarter: 2013Q1

REPORT INFORMATION
  Report Type: Spontaneous
  Country: IT (occurrence: IT)
  Receive Date: 20130326
  Receipt Date: 20130326
  Transmission Date: 20140127
  Serious: Yes (Hospitalization)
  Sender: FDA-Public Use
  Company Number: IT-TEVA-393227ISR

PATIENT
  Age: 16 Year
  Sex: Female

DRUGS (2)
  1. FLUOXETINA [Suspect]
     Dosage: 260 MILLIGRAM DAILY;
     Route: 048
     Dates: start: 20130204, end: 20130204
  2. ABILIFY [Suspect]
     Dosage: 65 MILLIGRAM DAILY;
     Route: 048
     Dates: start: 20130204, end: 20130204

REACTIONS (4)
  - Electrocardiogram QT prolonged [Recovering/Resolving]
  - Heart rate increased [Recovering/Resolving]
  - Suicide attempt [Recovering/Resolving]
  - Overdose [Recovering/Resolving]
